FAERS Safety Report 8343216-4 (Version None)
Quarter: 2012Q2

REPORT INFORMATION
  Report Type: 
  Country: None (occurrence: None)
  Receive Date: 20120503
  Receipt Date: 20120503
  Transmission Date: 20120825
  Serious: Yes (Hospitalization)
  Sender: FDA-Public Use
  Company Number: None

PATIENT
  Sex: Female
  Weight: 57.3 kg

DRUGS (1)
  1. PROLASTIN-C [Suspect]
     Indication: ALPHA-1 ANTI-TRYPSIN DEFICIENCY
     Dosage: 3513MG (3 X 1171NG VIALS WEEKLY IV
     Route: 042
     Dates: start: 20120430

REACTIONS (8)
  - HEART RATE INCREASED [None]
  - RASH MACULO-PAPULAR [None]
  - PALPITATIONS [None]
  - BLOOD POTASSIUM DECREASED [None]
  - JOINT SWELLING [None]
  - PRURITUS [None]
  - OEDEMA PERIPHERAL [None]
  - ANXIETY [None]
